FAERS Safety Report 16030791 (Version 1)
Quarter: 2019Q1

REPORT INFORMATION
  Report Type: Spontaneous
  Country: US (occurrence: US)
  Receive Date: 20190304
  Receipt Date: 20190304
  Transmission Date: 20190418
  Serious: No
  Sender: FDA-Public Use
  Company Number: US-PFIZER INC-2019082504

PATIENT
  Age: 63 Year
  Sex: Female
  Weight: 87.9 kg

DRUGS (6)
  1. LYRICA [Suspect]
     Active Substance: PREGABALIN
     Dosage: 75 MG, 3X/DAY
     Dates: start: 20190128
  2. LYRICA [Suspect]
     Active Substance: PREGABALIN
     Dosage: 75 MG, 3X/DAY [1 CAPSULE 3 TIMES DAILY AS NEEDED]
     Route: 048
     Dates: start: 20190213
  3. CLINDAMYCIN. [Concomitant]
     Active Substance: CLINDAMYCIN
     Dosage: UNK
  4. IBUPROFEN. [Concomitant]
     Active Substance: IBUPROFEN
     Dosage: 800 MG, DAILY (6 IN THE MORNING, 2 IN THE AFTERNOON, AND 2 AT NIGHT)
  5. LYRICA [Suspect]
     Active Substance: PREGABALIN
     Indication: POST HERPETIC NEURALGIA
     Dosage: 50 MG, 3X/DAY
     Route: 048
     Dates: start: 20190125
  6. ZOLOFT [Concomitant]
     Active Substance: SERTRALINE HYDROCHLORIDE
     Indication: DEPRESSION
     Dosage: 75 MG, DAILY (1 AND 1/2 TABLET)
     Dates: start: 20060905

REACTIONS (3)
  - Drug ineffective [Unknown]
  - Burning sensation [Not Recovered/Not Resolved]
  - Feeling abnormal [Unknown]
